FAERS Safety Report 4432285-X (Version None)
Quarter: 2004Q3

REPORT INFORMATION
  Report Type: 
  Country: None (occurrence: None)
  Receive Date: 20040819
  Receipt Date: 20040810
  Transmission Date: 20050211
  Serious: Yes (Hospitalization)
  Sender: FDA-Public Use
  Company Number: 2004-08-0301

PATIENT
  Age: 37 Year
  Sex: Male

DRUGS (3)
  1. PEG INTRON (PEGINTERFERON ALFA -2BH) INJECTABLE POWEDER [Suspect]
     Indication: HEPATITIS C
     Dosage: ORAL
     Route: 048
     Dates: start: 20040402, end: 20040630
  2. REBETOL [Suspect]
     Indication: HEPATITIS C
     Dosage: ORAL
     Route: 048
     Dates: start: 20040402, end: 20040630
  3. ANTIRETROVIRAL (NOS) [Suspect]
     Indication: HIV INFECTION

REACTIONS (2)
  - DRUG INTERACTION [None]
  - RED BLOOD CELL COUNT DECREASED [None]
